FAERS Safety Report 9003581 (Version 1)
Quarter: 2013Q1

REPORT INFORMATION
  Report Type: Spontaneous
  Country: US (occurrence: US)
  Receive Date: 20130108
  Receipt Date: 20130108
  Transmission Date: 20140127
  Serious: Yes (Hospitalization)
  Sender: FDA-Public Use
  Company Number: US-009507513-1301USA000289

PATIENT
  Age: 69 Year
  Sex: Male

DRUGS (3)
  1. TEMODAR [Suspect]
     Indication: NEOPLASM MALIGNANT
     Dosage: UNK
     Route: 048
     Dates: start: 201209
  2. METFORMIN [Concomitant]
  3. INSULIN [Concomitant]

REACTIONS (4)
  - Brain oedema [Unknown]
  - Oedema peripheral [Unknown]
  - Muscular weakness [Unknown]
  - Abasia [Unknown]
